FAERS Safety Report 20349685 (Version 1)
Quarter: 2022Q1

REPORT INFORMATION
  Report Type: Spontaneous
  Country: US (occurrence: None)
  Receive Date: 20220118
  Receipt Date: 20220118
  Transmission Date: 20220423
  Serious: Yes (Death)
  Sender: FDA-Public Use
  Company Number: None

PATIENT
  Age: 70 Year
  Sex: Male

DRUGS (1)
  1. AMIKACIN [Suspect]
     Active Substance: AMIKACIN
     Indication: Mycobacterium avium complex infection
     Dosage: 500/2 MG/ML ??INJECT 2ML IN THE MUSCLE TWO TIMES PER WEEK?
     Route: 030
     Dates: start: 20210521

REACTIONS (1)
  - Death [None]

NARRATIVE: CASE EVENT DATE: 20210521
